FAERS Safety Report 21589396 (Version 1)
Quarter: 2022Q4

REPORT INFORMATION
  Report Type: Spontaneous
  Country: ES (occurrence: None)
  Receive Date: 20221114
  Receipt Date: 20221114
  Transmission Date: 20230113
  Serious: Yes (Death)
  Sender: FDA-Public Use
  Company Number: 2022A369671

PATIENT
  Age: 52 Year
  Sex: Male

DRUGS (1)
  1. EVUSHELD [Suspect]
     Active Substance: CILGAVIMAB\TIXAGEVIMAB
     Indication: COVID-19 immunisation
     Dosage: 1.0DF ONCE/SINGLE ADMINISTRATION
     Route: 030
     Dates: start: 20221013, end: 20221013

REACTIONS (4)
  - Dyspnoea [Fatal]
  - Muscular weakness [Fatal]
  - Hypoxia [Fatal]
  - Asthenia [Fatal]

NARRATIVE: CASE EVENT DATE: 20221014
